FAERS Safety Report 5004371-7 (Version None)
Quarter: 2006Q2

REPORT INFORMATION
  Report Type: 
  Country: None (occurrence: None)
  Receive Date: 20060517
  Receipt Date: 20060503
  Transmission Date: 20061013
  Serious: Yes (Hospitalization, Other)
  Sender: FDA-Public Use
  Company Number: PHBS2006JP06554

PATIENT
  Age: 6 Year
  Sex: Male

DRUGS (8)
  1. NEORAL [Suspect]
     Indication: HISTIOCYTOSIS HAEMATOPHAGIC
     Dosage: 30 MG/D
     Route: 048
     Dates: start: 20000729, end: 20010509
  2. MYSTAN AZWELL [Suspect]
     Indication: EPILEPSY
     Dosage: 8 MG/DAY
     Route: 048
     Dates: start: 20030913, end: 20050510
  3. MYSTAN AZWELL [Suspect]
     Dosage: 5 MG/DAY
     Route: 048
     Dates: start: 20050511
  4. ZONISAMIDE [Suspect]
     Indication: EPILEPSY
     Dosage: 80 MG/DAY
     Route: 048
     Dates: start: 20030913, end: 20040120
  5. ZONISAMIDE [Suspect]
     Dosage: 110 MG/DAY
     Route: 048
     Dates: start: 20040121, end: 20040523
  6. ZONISAMIDE [Suspect]
     Dosage: 140 MG/DAY
     Route: 048
     Dates: start: 20040524
  7. DEPAKENE [Suspect]
     Indication: EPILEPSY
     Dosage: 435 MG/DAY
     Route: 048
     Dates: start: 20000630, end: 20021210
  8. DEPAKENE [Suspect]
     Dosage: 400 MG/DAY
     Route: 048
     Dates: start: 20021211

REACTIONS (7)
  - ATELECTASIS [None]
  - GASTRECTOMY [None]
  - HISTIOCYTOSIS HAEMATOPHAGIC [None]
  - METABOLIC ACIDOSIS [None]
  - PNEUMONIA [None]
  - RENAL TUBULAR ACIDOSIS [None]
  - SURGERY [None]
